FAERS Safety Report 6895223-6 (Version None)
Quarter: 2010Q3

REPORT INFORMATION
  Report Type: 
  Country: None (occurrence: None)
  Receive Date: 20100802
  Receipt Date: 20100722
  Transmission Date: 20110219
  Serious: Yes (Hospitalization)
  Sender: FDA-Public Use
  Company Number: PHHY2010US48534

PATIENT
  Sex: Female

DRUGS (1)
  1. VIVELLE-DOT [Suspect]
     Dosage: 0.05 PER WEEK
     Route: 062
     Dates: end: 20100713

REACTIONS (2)
  - HYPOAESTHESIA [None]
  - PARAESTHESIA [None]
